FAERS Safety Report 15648128 (Version 2)
Quarter: 2019Q1

REPORT INFORMATION
  Report Type: Spontaneous
  Country: US (occurrence: US)
  Receive Date: 20181122
  Receipt Date: 20190110
  Transmission Date: 20190417
  Serious: No
  Sender: FDA-Public Use
  Company Number: US-PFIZER INC-2018465236

PATIENT
  Age: 63 Year
  Sex: Female

DRUGS (2)
  1. NOVOCAINE [Suspect]
     Active Substance: PROCAINE
     Indication: PAIN IN EXTREMITY
     Dosage: UNK
     Route: 037
     Dates: start: 2017
  2. LIDOCAINE HCL [Suspect]
     Active Substance: LIDOCAINE HYDROCHLORIDE
     Indication: PAIN IN EXTREMITY
     Dosage: UNK
     Route: 037
     Dates: start: 2017

REACTIONS (1)
  - Paraesthesia [Unknown]

NARRATIVE: CASE EVENT DATE: 2017
